FAERS Safety Report 17616351 (Version 1)
Quarter: 2020Q2

REPORT INFORMATION
  Report Type: Spontaneous
  Country: RU (occurrence: RU)
  Receive Date: 20200402
  Receipt Date: 20200402
  Transmission Date: 20200713
  Serious: Yes (Hospitalization)
  Sender: FDA-Public Use
  Company Number: RU-ARBOR PHARMACEUTICALS, LLC-RU-2020ARB000271

PATIENT
  Age: 42 Year
  Sex: Male
  Weight: 100 kg

DRUGS (1)
  1. EDARBI [Suspect]
     Active Substance: AZILSARTAN KAMEDOXOMIL
     Indication: HYPERTENSION
     Dosage: 40 MG, QD
     Route: 048
     Dates: start: 202003

REACTIONS (4)
  - Blood pressure increased [Unknown]
  - Blood pressure abnormal [Unknown]
  - Dizziness [Unknown]
  - Headache [Unknown]

NARRATIVE: CASE EVENT DATE: 202003
